FAERS Safety Report 11548227 (Version 1)
Quarter: 2015Q3

REPORT INFORMATION
  Report Type: Spontaneous
  Country: US (occurrence: US)
  Receive Date: 20150924
  Receipt Date: 20150924
  Transmission Date: 20151125
  Serious: No
  Sender: FDA-Public Use
  Company Number: US-INCYTE CORPORATION-2015IN001029

PATIENT
  Age: 69 Year
  Sex: Female

DRUGS (16)
  1. CLARITHROMYCIN. [Concomitant]
     Active Substance: CLARITHROMYCIN
     Dosage: 500MG
     Dates: start: 20131104
  2. CITALOPRAM [Concomitant]
     Active Substance: CITALOPRAM HYDROBROMIDE
     Dosage: 10MG
     Dates: start: 20150301
  3. PROAIR HFA [Concomitant]
     Active Substance: ALBUTEROL SULFATE
     Dosage: 8.5G
     Dates: start: 20141230
  4. LEVALBUTEROL. [Concomitant]
     Active Substance: LEVALBUTEROL
     Dosage: 0.63MG/3ML
     Dates: start: 20141229
  5. ESTRADIOL. [Concomitant]
     Active Substance: ESTRADIOL
     Dosage: 0.0375 MG
     Dates: end: 20150311
  6. PREMARIN [Concomitant]
     Active Substance: ESTROGENS, CONJUGATED
     Dosage: 0.3 MG
  7. LORATADINE. [Concomitant]
     Active Substance: LORATADINE
     Dosage: 10MG
     Dates: start: 20141119
  8. ALBUTEROL                          /00139501/ [Concomitant]
     Active Substance: ALBUTEROL
     Dosage: 2.5MG/3ML
     Dates: start: 20140113
  9. MUCUS RELIEF [Concomitant]
     Active Substance: GUAIFENESIN
     Dosage: 600MG
     Dates: start: 20130909
  10. PREDNISONE. [Concomitant]
     Active Substance: PREDNISONE
     Dosage: 20 MG
  11. TETRACYCLINE [Concomitant]
     Active Substance: TETRACYCLINE
     Dosage: 500 MG
  12. ADVAIR HFA [Concomitant]
     Active Substance: FLUTICASONE PROPIONATE\SALMETEROL XINAFOATE
     Dosage: 500/50MCG
     Dates: start: 20141230
  13. CYCLOBENZAPRINE [Concomitant]
     Active Substance: CYCLOBENZAPRINE
     Dosage: 5MG
     Dates: start: 20140627
  14. FAMOTIDINE. [Concomitant]
     Active Substance: FAMOTIDINE
     Dosage: 20MG
     Dates: start: 20150106
  15. JAKAFI [Suspect]
     Active Substance: RUXOLITINIB
     Indication: MYELOFIBROSIS
     Dosage: 40 MG, QD
     Route: 048
     Dates: start: 20140528
  16. FLUTICASONE [Concomitant]
     Active Substance: FLUTICASONE\FLUTICASONE PROPIONATE
     Dosage: 50MCG
     Dates: start: 20141119

REACTIONS (1)
  - Palpitations [Not Recovered/Not Resolved]

NARRATIVE: CASE EVENT DATE: 20150218
